FAERS Safety Report 8349104-1 (Version None)
Quarter: 2012Q2

REPORT INFORMATION
  Report Type: 
  Country: None (occurrence: None)
  Receive Date: 20120508
  Receipt Date: 20120424
  Transmission Date: 20120825
  Serious: Yes (Hospitalization)
  Sender: FDA-Public Use
  Company Number: DSJ-2012-07685

PATIENT
  Age: 80 Year
  Sex: Male
  Weight: 73 kg

DRUGS (17)
  1. ITOROL (ISOSORBIDE MONONITRATE) (ISOSORBIDE MONONITRATE) [Concomitant]
  2. PURSENNID(SENNA ALEXANDRINA LEAF)(SENNA ALEXANDRINA LEAF) [Concomitant]
  3. CALBLOCK(AZELNIDIPINE) (TABLET) (AZELNIDIPINE) [Concomitant]
  4. ZYROLIC (ALLOPURINOL)(ALLOPURINOL) [Concomitant]
  5. BEPRICOR(BEPRIDIL)(TABLET)(BEPRIDIL) [Suspect]
     Indication: PRODUCT USED FOR UNKNOWN INDICATION
     Dosage: 100 MG,
     Dates: start: 20100811, end: 20110705
  6. ACTOS (PIOGLITAZONE) (PIOGLITAZONE) [Concomitant]
  7. EPLERENONE [Concomitant]
  8. METGLUCO (METFORMIN HYDROCHLORIDE)(METFORMIN HYDROCHLORIDE) [Concomitant]
  9. PERDIPINE LA (NICARDIPINE HYDROCHLORIDE)(NICARDIPINE HYDROCHLORIDE) [Concomitant]
  10. MAGMITT (MAGNESIUM OXIDE)(MAGNESIUM OXIDE) [Concomitant]
  11. WARFARIN SODIUM [Concomitant]
  12. MAGNESIUM OXIDE(MAGNESIUM OXIDE)(MAGNESIUM OXIDE) [Concomitant]
  13. BISOPROLOL FUMARATE [Concomitant]
  14. LASIX [Concomitant]
  15. JANUVIA (SITAGLIPTIN PHOSPHATE)(SITAGLIPTIN PHOSPHATE) [Concomitant]
  16. OLMESARTAN MEDOXOMIL [Suspect]
     Indication: PRODUCT USED FOR UNKNOWN INDICATION
     Dosage: 20 MG,PER ORAL
     Route: 048
     Dates: start: 20070723, end: 20101214
  17. NORVASC [Concomitant]

REACTIONS (2)
  - BLOOD PRESSURE DECREASED [None]
  - CARDIAC FAILURE ACUTE [None]
